FAERS Safety Report 8975533 (Version 2)
Quarter: 2013Q1

REPORT INFORMATION
  Report Type: Spontaneous
  Country: CO (occurrence: CO)
  Receive Date: 20121219
  Receipt Date: 20130129
  Transmission Date: 20140127
  Serious: Yes (Other)
  Sender: FDA-Public Use
  Company Number: CO-VERTEX PHARMACEUTICALS INC.-2012-026440

PATIENT
  Sex: Male
  Weight: 92 kg

DRUGS (4)
  1. INCIVO [Suspect]
     Indication: HEPATITIS C
     Dosage: 750 MG, TID
     Route: 048
     Dates: start: 20121013
  2. RIBAVIRIN [Concomitant]
     Indication: PRODUCT USED FOR UNKNOWN INDICATION
     Dosage: UNK
     Route: 065
  3. INTERFERON ALFA [Concomitant]
     Indication: PRODUCT USED FOR UNKNOWN INDICATION
     Dosage: UNK
     Route: 065
  4. CHLORPHENIRAMINE [Concomitant]
     Dosage: UNK
     Route: 065

REACTIONS (5)
  - Anal inflammation [Unknown]
  - Loss of consciousness [Unknown]
  - Abnormal faeces [Unknown]
  - Chromaturia [Unknown]
  - Rash [Not Recovered/Not Resolved]
